FAERS Safety Report 7800070-4 (Version None)
Quarter: 2011Q4

REPORT INFORMATION
  Report Type: 
  Country: None (occurrence: None)
  Receive Date: 20111006
  Receipt Date: 20110920
  Transmission Date: 20120403
  Serious: Yes (Other)
  Sender: FDA-Public Use
  Company Number: DE-PFIZER INC-2011237452

PATIENT
  Age: 30 Year
  Sex: Female

DRUGS (8)
  1. PANTOPRAZOLE [Suspect]
     Dosage: 40 MG, 1X/DAY
     Route: 048
  2. MESALAZINE [Concomitant]
  3. METRONIDAZOLE [Concomitant]
  4. PANTOPRAZOLE [Suspect]
     Indication: DYSPEPSIA
     Dosage: 40 MG, 1X/DAY
     Route: 048
  5. PANTOPRAZOLE [Suspect]
     Dosage: 80 MG, 1X/DAY
     Route: 048
  6. MERCAPTOPURINE [Concomitant]
  7. CALCIUM CARBONATE [Concomitant]
     Dosage: 500 MG, UNK
  8. COLECALCIFEROL [Concomitant]
     Dosage: 1000 IU, UNK

REACTIONS (4)
  - HYPOMAGNESAEMIA [None]
  - HYPERTENSION [None]
  - TETANY [None]
  - HYPOCALCAEMIA [None]
